FAERS Safety Report 5521154-X (Version None)
Quarter: 2007Q4

REPORT INFORMATION
  Report Type: 
  Country: None (occurrence: None)
  Receive Date: 20071119
  Receipt Date: 20071114
  Transmission Date: 20080405
  Serious: Yes (Life-Threatening)
  Sender: FDA-Public Use
  Company Number: IT-ASTRAZENECA-2007SE06058

PATIENT
  Age: 12 Year
  Sex: Male

DRUGS (1)
  1. FOSCAVIR [Suspect]
     Indication: CYTOMEGALOVIRUS INFECTION
     Route: 042
     Dates: start: 20071102, end: 20071104

REACTIONS (6)
  - BLOOD PRESSURE INCREASED [None]
  - CONVULSION [None]
  - HEADACHE [None]
  - LOSS OF CONSCIOUSNESS [None]
  - PARAESTHESIA ORAL [None]
  - VISION BLURRED [None]
